FAERS Safety Report 6956166-2 (Version None)
Quarter: 2010Q3

REPORT INFORMATION
  Report Type: 
  Country: None (occurrence: None)
  Receive Date: 20100830
  Receipt Date: 20100817
  Transmission Date: 20110219
  Serious: Yes (Other)
  Sender: FDA-Public Use
  Company Number: PHFR2010GB02544

PATIENT
  Sex: Female

DRUGS (2)
  1. ESTRADERM [Suspect]
     Dosage: 50MG PATCHES
     Route: 062
  2. ESTRADERM [Suspect]
     Dosage: 25MG PATCHES

REACTIONS (1)
  - AMNESIA [None]
